FAERS Safety Report 6869108-5 (Version None)
Quarter: 2010Q3

REPORT INFORMATION
  Report Type: 
  Country: None (occurrence: None)
  Receive Date: 20100722
  Receipt Date: 20080917
  Transmission Date: 20110219
  Serious: Yes (Other)
  Sender: FDA-Public Use
  Company Number: US-PFIZER INC-2008059163

PATIENT
  Sex: Male
  Weight: 90.7 kg

DRUGS (10)
  1. CHANTIX [Suspect]
     Indication: SMOKING CESSATION THERAPY
     Route: 048
     Dates: start: 20071127
  2. PLAVIX [Concomitant]
     Route: 048
  3. OMEPRAZOLE [Concomitant]
     Route: 048
  4. METOPROLOL TARTRATE [Concomitant]
     Route: 048
  5. VYTORIN [Concomitant]
     Route: 048
  6. ACETYLSALICYLIC ACID [Concomitant]
     Route: 048
  7. CENTRUM SILVER [Concomitant]
     Route: 048
  8. MAGNESIUM CHLORIDE ANHYDROUS [Concomitant]
     Route: 048
  9. NITROGLYCERIN [Concomitant]
     Indication: CHEST PAIN
     Route: 060
  10. VITAMIN C [Concomitant]
     Route: 048

REACTIONS (9)
  - ABNORMAL DREAMS [None]
  - ATRIAL FIBRILLATION [None]
  - CONFUSIONAL STATE [None]
  - DYSPNOEA EXERTIONAL [None]
  - HEART RATE INCREASED [None]
  - MUSCLE SPASMS [None]
  - PALPITATIONS [None]
  - STRESS [None]
  - WEIGHT INCREASED [None]
